FAERS Safety Report 10207471 (Version 1)
Quarter: 2014Q2

REPORT INFORMATION
  Report Type: Spontaneous
  Country: US (occurrence: None)
  Receive Date: 20140529
  Receipt Date: 20140529
  Transmission Date: 20141212
  Serious: Yes (Disabling)
  Sender: FDA-Public Use
  Company Number: None

PATIENT
  Age: 49 Year
  Sex: Female
  Weight: 83.92 kg

DRUGS (1)
  1. LEVAQUIN 500 [Suspect]
     Indication: SINUSITIS
     Dosage: 1 PILL, ONCE DAILY, TAKEN BY MOUTH
     Route: 048
     Dates: start: 20140326, end: 20140402

REACTIONS (13)
  - Myalgia [None]
  - Arthralgia [None]
  - Muscle spasms [None]
  - Pain [None]
  - Pruritus [None]
  - Vision blurred [None]
  - Pain in extremity [None]
  - Musculoskeletal pain [None]
  - Arthralgia [None]
  - Gastrooesophageal reflux disease [None]
  - Nausea [None]
  - Dyspepsia [None]
  - Toxicity to various agents [None]
